FAERS Safety Report 12168608 (Version 2)
Quarter: 2016Q1

REPORT INFORMATION
  Report Type: Spontaneous
  Country: NL (occurrence: NL)
  Receive Date: 20160310
  Receipt Date: 20160318
  Transmission Date: 20160526
  Serious: Yes (Life-Threatening, Hospitalization, Other)
  Sender: FDA-Public Use
  Company Number: NL-ASTRAZENECA-2016SE25481

PATIENT
  Age: 43 Year
  Sex: Male

DRUGS (4)
  1. OXAZEPAM. [Suspect]
     Active Substance: OXAZEPAM
     Route: 065
  2. VALPROIC ACID. [Suspect]
     Active Substance: VALPROIC ACID
     Route: 048
  3. ALCOHOL. [Suspect]
     Active Substance: ALCOHOL
     Route: 065
  4. QUETIAPINE [Suspect]
     Active Substance: QUETIAPINE
     Route: 048

REACTIONS (10)
  - Metabolic encephalopathy [Unknown]
  - Intentional overdose [Unknown]
  - Haemodynamic instability [Unknown]
  - Toxicity to various agents [Recovered/Resolved]
  - Coma [Recovered/Resolved]
  - Blood creatine phosphokinase increased [Unknown]
  - Hepatic function abnormal [Recovered/Resolved]
  - Respiratory depression [Unknown]
  - Electrocardiogram QT prolonged [Unknown]
  - Hyperammonaemia [Recovered/Resolved]
